FAERS Safety Report 5233568-6 (Version None)
Quarter: 2007Q1

REPORT INFORMATION
  Report Type: 
  Country: None (occurrence: None)
  Receive Date: 20070208
  Receipt Date: 20070126
  Transmission Date: 20070707
  Serious: Yes (Death, Hospitalization)
  Sender: FDA-Public Use
  Company Number: GBWYE406229JAN07

PATIENT
  Sex: Female

DRUGS (15)
  1. ENBREL [Suspect]
     Indication: RHEUMATOID ARTHRITIS
     Route: 058
     Dates: start: 20031001
  2. BENDROFLUMETHIAZIDE [Concomitant]
     Dates: start: 20031201
  3. CALCICHEW-D3 [Concomitant]
     Dates: start: 20051101
  4. CITALOPRAM HYDROBROMIDE [Concomitant]
     Dates: start: 20061206
  5. ACETAMINOPHEN AND CODEINE PHOSPHATE [Concomitant]
     Dosage: AS NECESSARY
     Dates: start: 20060501
  6. DOXAZOSIN MESYLATE [Concomitant]
     Dates: start: 20040401
  7. FUROSEMIDE [Concomitant]
     Dates: start: 20061222
  8. LEFLUNOMIDE [Concomitant]
     Dates: start: 20031101
  9. OMEPRAZOLE [Concomitant]
     Dates: start: 20031201
  10. PREDNISOLONE [Concomitant]
     Dates: start: 20031201
  11. PREGADAY [Concomitant]
     Dosage: UNKNOWN
     Dates: start: 20031201
  12. PROPRANOLOL [Concomitant]
     Dates: start: 20010301
  13. RAMIPRIL [Concomitant]
     Dates: start: 20040401
  14. TRAMADOL HCL [Concomitant]
     Dosage: 50 MG EVERY 1 PRN
     Dates: start: 20031201
  15. ARTHROTEC [Concomitant]
     Dates: start: 20031101

REACTIONS (5)
  - CARDIAC ARREST [None]
  - LOWER RESPIRATORY TRACT INFECTION [None]
  - PNEUMONIA [None]
  - SEPSIS [None]
  - SEPTIC SHOCK [None]
